FAERS Safety Report 8603962-1 (Version None)
Quarter: 2012Q3

REPORT INFORMATION
  Report Type: 
  Country: None (occurrence: None)
  Receive Date: 20120820
  Receipt Date: 20120808
  Transmission Date: 20120928
  Serious: Yes (Hospitalization)
  Sender: FDA-Public Use
  Company Number: US-BIOGENIDEC-2012BI016157

PATIENT
  Age: 60 Year
  Sex: Female

DRUGS (9)
  1. DETROL LA [Concomitant]
  2. LOSARTAN POTASSIUM AND HYDROCHLOROTHIAZIDE [Concomitant]
  3. BACLOFEN [Concomitant]
     Indication: MUSCLE SPASTICITY
  4. ZANAFLEX [Concomitant]
     Indication: MUSCLE SPASTICITY
  5. DANTROLENE SODIUM [Concomitant]
     Indication: MUSCLE SPASTICITY
  6. AVONEX [Suspect]
     Indication: MULTIPLE SCLEROSIS
     Route: 030
  7. NITROFURANTOIN [Concomitant]
  8. SYNTHROID [Concomitant]
  9. SIMVASTATIN [Concomitant]

REACTIONS (4)
  - SUBARACHNOID HAEMORRHAGE [None]
  - CONVULSION [None]
  - HEPATIC ENZYME INCREASED [None]
  - HYPERTENSIVE ENCEPHALOPATHY [None]
